FAERS Safety Report 7953278-1 (Version None)
Quarter: 2011Q4

REPORT INFORMATION
  Report Type: 
  Country: None (occurrence: None)
  Receive Date: 20111201
  Receipt Date: 20111117
  Transmission Date: 20120403
  Serious: Yes (Death)
  Sender: FDA-Public Use
  Company Number: JP-MYLANLABS-2011S1024253

PATIENT
  Age: 8 Decade
  Sex: Female

DRUGS (1)
  1. AZATHIOPRINE [Suspect]
     Indication: MYELODYSPLASTIC SYNDROME
     Dosage: 50 MG/DAY
     Route: 065
     Dates: start: 20020401, end: 20060101

REACTIONS (6)
  - FALL [None]
  - PROGRESSIVE MULTIFOCAL LEUKOENCEPHALOPATHY [None]
  - MUTISM [None]
  - FEMORAL NECK FRACTURE [None]
  - PNEUMONIA [None]
  - CEREBRAL INFARCTION [None]
